FAERS Safety Report 24042891 (Version 2)
Quarter: 2024Q3

REPORT INFORMATION
  Report Type: Spontaneous
  Country: US (occurrence: US)
  Receive Date: 20240702
  Receipt Date: 20240927
  Transmission Date: 20241016
  Serious: Yes (Other)
  Sender: PFIZER
  Company Number: US-PFIZER INC-PV202400085538

PATIENT
  Age: 68 Year
  Sex: Female

DRUGS (1)
  1. INLYTA [Suspect]
     Active Substance: AXITINIB
     Dosage: 1 MG, THREE WEEKS ON
     Dates: start: 202406

REACTIONS (3)
  - Spinal fracture [Unknown]
  - Kidney infection [Unknown]
  - Urinary tract infection [Unknown]
